FAERS Safety Report 7236531-9 (Version None)
Quarter: 2011Q1

REPORT INFORMATION
  Report Type: 
  Country: None (occurrence: None)
  Receive Date: 20110120
  Receipt Date: 20110105
  Transmission Date: 20110831
  Serious: Yes (Other)
  Sender: FDA-Public Use
  Company Number: IN-BAUSCH-2011BL000146

PATIENT
  Age: 70 Year
  Sex: Male

DRUGS (3)
  1. DORZOLAMIDE [Suspect]
     Indication: GLAUCOMA
     Route: 047
  2. ATENOLOL [Concomitant]
  3. TIMOLOL [Suspect]
     Indication: GLAUCOMA
     Route: 047

REACTIONS (1)
  - CHOROIDAL DETACHMENT [None]
